FAERS Safety Report 4751326-3 (Version None)
Quarter: 2005Q3

REPORT INFORMATION
  Report Type: 
  Country: None (occurrence: None)
  Receive Date: 20050824
  Receipt Date: 20050803
  Transmission Date: 20060218
  Serious: Yes (Hospitalization)
  Sender: FDA-Public Use
  Company Number: US-AMGEN-US145525

PATIENT
  Sex: Male

DRUGS (1)
  1. FILGRASTIM [Suspect]
     Indication: BLOOD STEM CELL HARVEST
     Route: 058
     Dates: start: 20050731, end: 20050801

REACTIONS (8)
  - BLOOD ALKALINE PHOSPHATASE INCREASED [None]
  - BLOOD BILIRUBIN INCREASED [None]
  - BLOOD LACTATE DEHYDROGENASE INCREASED [None]
  - CHEST PAIN [None]
  - DYSPNOEA [None]
  - HEPATIC FUNCTION ABNORMAL [None]
  - SPLENOMEGALY [None]
  - TACHYCARDIA [None]
